FAERS Safety Report 19257092 (Version 1)
Quarter: 2021Q2

REPORT INFORMATION
  Report Type: Spontaneous
  Country: GB (occurrence: GB)
  Receive Date: 20210513
  Receipt Date: 20210513
  Transmission Date: 20210717
  Serious: Yes (Life-Threatening, Hospitalization, Other)
  Sender: FDA-Public Use
  Company Number: GB-BAUSCH-BL-2021-016882

PATIENT
  Age: 33 Year
  Sex: Male

DRUGS (3)
  1. BUDESONIDE. [Suspect]
     Active Substance: BUDESONIDE
     Indication: COLITIS ULCERATIVE
     Route: 065
  2. BUDESONIDE. [Suspect]
     Active Substance: BUDESONIDE
     Indication: CONDITION AGGRAVATED
     Dosage: REDUCING REGIMEN
     Route: 065
  3. MESALAZINE [Concomitant]
     Active Substance: MESALAMINE
     Indication: COLITIS ULCERATIVE

REACTIONS (12)
  - Coagulopathy [Recovered/Resolved]
  - Hypotension [Recovered/Resolved]
  - Hyperkalaemia [Recovered/Resolved]
  - Sepsis [Recovered/Resolved]
  - H1N1 influenza [Recovered/Resolved]
  - Unresponsive to stimuli [Recovered/Resolved]
  - Adrenocortical insufficiency acute [Recovered/Resolved]
  - Adrenal insufficiency [Recovered/Resolved]
  - Hyponatraemia [Recovered/Resolved]
  - Product use issue [Recovered/Resolved]
  - Adrenal haemorrhage [Recovered/Resolved]
  - Circulatory collapse [Recovered/Resolved]
